FAERS Safety Report 8214360-7 (Version None)
Quarter: 2012Q1

REPORT INFORMATION
  Report Type: 
  Country: None (occurrence: None)
  Receive Date: 20120316
  Receipt Date: 20120302
  Transmission Date: 20120608
  Serious: Yes (Life-Threatening, Hospitalization)
  Sender: FDA-Public Use
  Company Number: FR-SANOFI-AVENTIS-2012SA014320

PATIENT
  Age: 66 Year
  Sex: Male

DRUGS (6)
  1. EZETIMIBE [Concomitant]
  2. AMARYL [Suspect]
     Route: 048
     Dates: end: 20111201
  3. INNOHEP [Suspect]
     Route: 058
     Dates: end: 20111209
  4. SUTENT /05510201/ [Suspect]
     Route: 048
     Dates: end: 20111209
  5. PROCORALAN [Suspect]
     Route: 048
     Dates: end: 20111209
  6. NEXIUM [Suspect]
     Route: 048
     Dates: end: 20111201

REACTIONS (1)
  - ISCHAEMIC STROKE [None]
